FAERS Safety Report 16652704 (Version 1)
Quarter: 2019Q3

REPORT INFORMATION
  Report Type: Spontaneous
  Country: DE (occurrence: DE)
  Receive Date: 20190731
  Receipt Date: 20190731
  Transmission Date: 20191004
  Serious: Yes (Hospitalization, Other)
  Sender: FDA-Public Use
  Company Number: PHHY2019DE176009

PATIENT
  Age: 43 Year
  Sex: Female
  Weight: 53 kg

DRUGS (1)
  1. AMOXI 1A PHARMA [Suspect]
     Active Substance: AMOXICILLIN
     Indication: PRODUCT USED FOR UNKNOWN INDICATION
     Dosage: 1000 MG, Q8H
     Route: 048
     Dates: start: 20190626, end: 20190629

REACTIONS (3)
  - Diarrhoea [Recovering/Resolving]
  - Rash [Recovering/Resolving]
  - Gastroenteritis bacterial [Recovering/Resolving]

NARRATIVE: CASE EVENT DATE: 20190703
